FAERS Safety Report 11851668 (Version 1)
Quarter: 2015Q4

REPORT INFORMATION
  Report Type: Spontaneous
  Country: TR (occurrence: TR)
  Receive Date: 20151218
  Receipt Date: 20151218
  Transmission Date: 20160305
  Serious: Yes (Other)
  Sender: FDA-Public Use
  Company Number: PHHY2015TR162779

PATIENT
  Age: 30 Year
  Sex: Female
  Weight: 52 kg

DRUGS (2)
  1. GLUKOFEN [Suspect]
     Active Substance: METFORMIN HYDROCHLORIDE
     Indication: POLYCYSTIC OVARIES
     Dosage: 850 MG, BID
     Route: 048
     Dates: start: 201504, end: 201510
  2. ROACCUTANE [Concomitant]
     Active Substance: ISOTRETINOIN
     Indication: ACNE
     Dosage: 20 MG, BID
     Route: 065
     Dates: start: 201506, end: 20151017

REACTIONS (5)
  - Nausea [Recovered/Resolved]
  - Dysgeusia [Recovered/Resolved]
  - Decreased appetite [Recovered/Resolved]
  - Product odour abnormal [Recovered/Resolved]
  - Eating disorder [Recovered/Resolved]

NARRATIVE: CASE EVENT DATE: 201509
